FAERS Safety Report 25920605 (Version 1)
Quarter: 2025Q4

REPORT INFORMATION
  Report Type: Spontaneous
  Country: US (occurrence: US)
  Receive Date: 20251014
  Receipt Date: 20251014
  Transmission Date: 20260118
  Serious: No
  Sender: FENNEC PHARMACEUTICALS
  Company Number: US-FENNEC PHARMACEUTICALS, INC.-2025FEN00069

PATIENT
  Age: 54 Year
  Sex: Male

DRUGS (2)
  1. PEDMARK [Suspect]
     Active Substance: SODIUM THIOSULFATE
     Dosage: UNK (3 VIALS)
     Route: 042
     Dates: start: 20250701
  2. CISPLATIN [Suspect]
     Active Substance: CISPLATIN

REACTIONS (5)
  - Chills [Unknown]
  - Hiccups [Unknown]
  - Fatigue [Unknown]
  - Nausea [Unknown]
  - Off label use [Unknown]

NARRATIVE: CASE EVENT DATE: 20250701
